FAERS Safety Report 17761682 (Version 1)
Quarter: 2020Q2

REPORT INFORMATION
  Report Type: Spontaneous
  Country: FR (occurrence: FR)
  Receive Date: 20200508
  Receipt Date: 20200508
  Transmission Date: 20200714
  Serious: Yes (Life-Threatening)
  Sender: FDA-Public Use
  Company Number: FR-CADILA HEALTHCARE LIMITED-FR-ZYDUS-025455

PATIENT

DRUGS (10)
  1. DAONIL [Suspect]
     Active Substance: GLYBURIDE
     Indication: TYPE 2 DIABETES MELLITUS
     Dosage: 1.5 DOSAGE FORM,(INTERVAL :1 DAYS)
     Route: 048
     Dates: end: 20180106
  2. METFORMIN [Suspect]
     Active Substance: METFORMIN HYDROCHLORIDE
     Indication: TYPE 2 DIABETES MELLITUS
     Dosage: 2550 MILLIGRAM,(INTERVAL :1 DAYS)
     Route: 048
     Dates: end: 20180106
  3. RAMIPRIL. [Suspect]
     Active Substance: RAMIPRIL
     Indication: HYPERTENSION
     Dosage: 10 MILLIGRAM,(INTERVAL :1 DAYS)
     Route: 048
     Dates: end: 20180106
  4. BISOPROLOL [Concomitant]
     Active Substance: BISOPROLOL
     Dosage: ()
  5. EZETROL [Concomitant]
     Active Substance: EZETIMIBE
     Dosage: ()
  6. LASILIX [Concomitant]
     Active Substance: FUROSEMIDE
     Dosage: ()
  7. SINEMET [Concomitant]
     Active Substance: CARBIDOPA\LEVODOPA
     Dosage: ()
  8. XALATAN [Concomitant]
     Active Substance: LATANOPROST
     Dosage: ()
  9. STALEVO [Concomitant]
     Active Substance: CARBIDOPA\ENTACAPONE\LEVODOPA
     Dosage: ()
  10. PREVISCAN [Concomitant]
     Dosage: ()

REACTIONS (4)
  - Diarrhoea [Recovered/Resolved]
  - Lactic acidosis [Recovered/Resolved]
  - Vomiting [Recovered/Resolved]
  - Hypoglycaemia [Recovered/Resolved]

NARRATIVE: CASE EVENT DATE: 20180106
